FAERS Safety Report 23763566 (Version 1)
Quarter: 2024Q2

REPORT INFORMATION
  Report Type: Spontaneous
  Country: DE (occurrence: DE)
  Receive Date: 20240419
  Receipt Date: 20240419
  Transmission Date: 20240716
  Serious: Yes (Other)
  Sender: FDA-Public Use
  Company Number: DE-GILEAD-2024-0669749

PATIENT
  Sex: Female

DRUGS (2)
  1. LENACAPAVIR [Suspect]
     Active Substance: LENACAPAVIR
     Indication: Product used for unknown indication
     Dosage: UNK
     Route: 065
  2. LENACAPAVIR [Suspect]
     Active Substance: LENACAPAVIR
     Dosage: UNK
     Route: 065
     Dates: start: 202401

REACTIONS (1)
  - Injection site abscess [Unknown]
